FAERS Safety Report 7901418-2 (Version None)
Quarter: 2011Q4

REPORT INFORMATION
  Report Type: 
  Country: None (occurrence: None)
  Receive Date: 20111104
  Receipt Date: 20111027
  Transmission Date: 20120403
  Serious: Yes (Other)
  Sender: FDA-Public Use
  Company Number: DSJ-2011-16525

PATIENT
  Age: 81 Year
  Weight: 69 kg

DRUGS (16)
  1. MYONAL (EPIRIZOLE HYDROCHLORIDE) (EPIRIZOLE HYDROCHLORIDE) [Concomitant]
  2. SHAKUYAKUKANZOUTOU (HERBAL EXTRACT NOS) (GRANULES) (HERBAL EXTRACT NOS [Concomitant]
  3. EXCELASE (ENZYMES NOS) (TABLET) (ENZYMES NOS) [Concomitant]
  4. HALFDIGOXIN (DIGOXIN) (DIGOXIN) [Concomitant]
  5. PROTECADIN (LAFUTIDINE) (TABLET) (LAFUTIDINE) [Concomitant]
  6. UBILON (TIBOLONE) (TABLET) (TIBOLONE) [Concomitant]
  7. CARDENALIN (DOXAZOSIN MESILATE) (DOXAZOSIN MESILATE) [Concomitant]
  8. STRONGER NEO-MINOPHAGEN C (CYSTEINE, AMINOACETIC ACID, GLYCYRRHIZIC AC [Concomitant]
  9. MAGMITT (MAGNESIUM OXIDE) (TABLET) (MAGNESIUM OXIDE) [Concomitant]
  10. WARFARIN SODIUM [Concomitant]
  11. LASIX [Concomitant]
  12. OLMESARTAN MEDOXOMIL [Suspect]
     Indication: HYPERTENSION
     Dosage: 20 MG, PER ORAL
     Route: 048
     Dates: start: 20110118, end: 20110808
  13. GASMOTIN (MOSAPRIDE CITRATE) (TABLET) (MOSAPRIDE CITRATE) [Concomitant]
  14. KAKKONTOU (HERBAL EXTRACT NOS) (GRANULES) (HERBAL EXTRACT NOS) [Concomitant]
  15. PRAVASTATIN SODIUM [Concomitant]
  16. MOHRUS L (KETOPROFEN) (POULTICE OR PATCH) (KETOPROFEN) [Concomitant]

REACTIONS (3)
  - PURPURA [None]
  - HYPOGLYCAEMIA [None]
  - MUSCLE SPASMS [None]
